FAERS Safety Report 7381977-1 (Version None)
Quarter: 2011Q1

REPORT INFORMATION
  Report Type: 
  Country: None (occurrence: None)
  Receive Date: 20110329
  Receipt Date: 20110322
  Transmission Date: 20110831
  Serious: Yes (Hospitalization)
  Sender: FDA-Public Use
  Company Number: US-US-EMD SERONO, INC.-7049181

PATIENT
  Sex: Female
  Weight: 47 kg

DRUGS (3)
  1. REBIF [Suspect]
     Route: 058
     Dates: start: 20110320
  2. CIPRO [Suspect]
     Indication: URINARY TRACT INFECTION
     Dates: start: 20110201, end: 20110101
  3. REBIF [Suspect]
     Indication: MULTIPLE SCLEROSIS
     Route: 058
     Dates: start: 20101011, end: 20110201

REACTIONS (4)
  - CAMPYLOBACTER INFECTION [None]
  - CLOSTRIDIUM DIFFICILE COLITIS [None]
  - INJECTION SITE PAIN [None]
  - INJECTION SITE ERYTHEMA [None]
